FAERS Safety Report 4299103-4 (Version None)
Quarter: 2004Q1

REPORT INFORMATION
  Report Type: 
  Country: None (occurrence: None)
  Receive Date: 20040217
  Receipt Date: 20040212
  Transmission Date: 20041129
  Serious: Yes (Other)
  Sender: FDA-Public Use
  Company Number: HQWYE221109JAN04

PATIENT
  Age: 45 Year
  Sex: Male
  Weight: 108.96 kg

DRUGS (7)
  1. PROTONIX [Suspect]
     Indication: GASTRITIS
     Dosage: SEE IMAGE
     Route: 048
     Dates: start: 20031101, end: 20030101
  2. PROTONIX [Suspect]
     Indication: GASTRITIS
     Dosage: SEE IMAGE
     Route: 048
     Dates: start: 20030101
  3. PROPRANOLOL [Concomitant]
  4. NASACORT AQ (TRIAMCINOLONE ACETONIDE) [Concomitant]
  5. CARAFATE [Concomitant]
  6. AMBIEN [Concomitant]
  7. TYLENOL [Concomitant]

REACTIONS (5)
  - BLOOD TESTOSTERONE DECREASED [None]
  - FATIGUE [None]
  - LIBIDO DECREASED [None]
  - MUSCLE CRAMP [None]
  - MUSCLE SPASMS [None]
